FAERS Safety Report 14968590 (Version 1)
Quarter: 2018Q2

REPORT INFORMATION
  Report Type: Spontaneous
  Country: US (occurrence: US)
  Receive Date: 20180604
  Receipt Date: 20180604
  Transmission Date: 20180711
  Serious: Yes (Other)
  Sender: FDA-Public Use
  Company Number: US-SA-2017SA263632

PATIENT
  Age: 48 Year
  Sex: Female
  Weight: 68 kg

DRUGS (18)
  1. COUMADIN [Concomitant]
     Active Substance: WARFARIN SODIUM
  2. TAXOTERE [Suspect]
     Active Substance: DOCETAXEL
     Dosage: 131 MG, Q3W
     Route: 042
     Dates: start: 20080811, end: 20080811
  3. NEULASTA [Concomitant]
     Active Substance: PEGFILGRASTIM
  4. RESTORIL [CHLORMEZANONE] [Concomitant]
  5. CYCLOPHOSPHAMIDE. [Concomitant]
     Active Substance: CYCLOPHOSPHAMIDE
  6. DOXORUBICIN [Concomitant]
     Active Substance: DOXORUBICIN
  7. CYTOXAN [Concomitant]
     Active Substance: CYCLOPHOSPHAMIDE
  8. TAXOTERE [Suspect]
     Active Substance: DOCETAXEL
     Indication: BREAST CANCER
     Dosage: 131 MG, Q3W
     Route: 042
     Dates: start: 20080428, end: 20080428
  9. ADRIAMYCIN [DOXORUBICIN] [Concomitant]
  10. WARFARIN [Concomitant]
     Active Substance: WARFARIN
  11. CLEOCIN [CLINDAMYCIN PHOSPHATE] [Concomitant]
  12. DOXYCYCLINE. [Concomitant]
     Active Substance: DOXYCYCLINE
  13. ATIVAN [Concomitant]
     Active Substance: LORAZEPAM
  14. KEFLEX [CEFALEXIN MONOHYDRATE] [Concomitant]
  15. PERCOCET [OXYCODONE HYDROCHLORIDE;OXYCODONE TEREPHTHALATE;PARACETAMOL] [Concomitant]
  16. XANAX [Concomitant]
     Active Substance: ALPRAZOLAM
  17. EMLA [LIDOCAINE HYDROCHLORIDE;PRILOCAINE HYDROCHLORIDE] [Concomitant]
  18. IRON [Concomitant]
     Active Substance: IRON

REACTIONS (2)
  - Psychological trauma [Unknown]
  - Alopecia [Recovering/Resolving]

NARRATIVE: CASE EVENT DATE: 200902
